FAERS Safety Report 6974387-X (Version None)
Quarter: 2010Q3

REPORT INFORMATION
  Report Type: 
  Country: None (occurrence: None)
  Receive Date: 20100909
  Receipt Date: 20100908
  Transmission Date: 20110219
  Serious: Yes (Other)
  Sender: FDA-Public Use
  Company Number: US-AMGEN-QUU434975

PATIENT
  Sex: Female

DRUGS (1)
  1. ENBREL [Suspect]
     Indication: PSORIASIS
     Dates: start: 20070621

REACTIONS (4)
  - LARGE FOR DATES BABY [None]
  - PLEURAL EFFUSION [None]
  - PSORIASIS [None]
  - THERAPEUTIC RESPONSE DECREASED [None]
